FAERS Safety Report 19627997 (Version 2)
Quarter: 2022Q1

REPORT INFORMATION
  Report Type: Spontaneous
  Country: FR (occurrence: None)
  Receive Date: 20210729
  Receipt Date: 20220120
  Transmission Date: 20220424
  Serious: Yes (Hospitalization)
  Sender: FDA-Public Use
  Company Number: FR-ROCHE-2878525

PATIENT
  Age: 30 Year
  Sex: Male
  Weight: 100.5 kg

DRUGS (12)
  1. BACTRIM [Suspect]
     Active Substance: SULFAMETHOXAZOLE\TRIMETHOPRIM
     Indication: Brain abscess
     Route: 065
     Dates: start: 20210526
  2. CELLCEPT [Suspect]
     Active Substance: MYCOPHENOLATE MOFETIL
     Indication: Graft versus host disease
     Route: 065
     Dates: start: 202105
  3. TEICOPLANIN [Suspect]
     Active Substance: TEICOPLANIN
     Indication: Product used for unknown indication
     Route: 065
     Dates: start: 20210518, end: 20210530
  4. SOLIRIS [Suspect]
     Active Substance: ECULIZUMAB
     Indication: Product used for unknown indication
     Dosage: 900 MG LE 20/05 PUIS?1200 MG LE 28/05 ET LE?04/06
     Route: 065
     Dates: start: 20210520
  5. KEPPRA [Suspect]
     Active Substance: LEVETIRACETAM
     Indication: Product used for unknown indication
     Route: 065
     Dates: start: 20210520
  6. KEPPRA [Suspect]
     Active Substance: LEVETIRACETAM
     Route: 065
     Dates: start: 20210520
  7. MYCOPHENOLIC ACID [Suspect]
     Active Substance: MYCOPHENOLIC ACID
     Indication: Graft versus host disease
     Route: 065
     Dates: start: 202105, end: 20210615
  8. METRONIDAZOLE [Suspect]
     Active Substance: METRONIDAZOLE
     Indication: Brain abscess
     Dosage: 1.5 GRAM EVERY 1 DAY(S)?500 MG X 3 PAR JOUR
     Route: 065
     Dates: start: 20210526
  9. LETERMOVIR [Suspect]
     Active Substance: LETERMOVIR
     Indication: Product used for unknown indication
     Route: 065
     Dates: start: 20210512
  10. CEFOTAXIME [Suspect]
     Active Substance: CEFOTAXIME SODIUM
     Indication: Brain abscess
     Route: 065
     Dates: start: 20210526
  11. POSACONAZOLE [Suspect]
     Active Substance: POSACONAZOLE
     Indication: Aspergillus infection
     Route: 065
     Dates: start: 20210519
  12. ACYCLOVIR [Suspect]
     Active Substance: ACYCLOVIR
     Indication: Meningoencephalitis herpetic
     Route: 065
     Dates: start: 20210517, end: 20210519

REACTIONS (4)
  - Neutropenia [Recovering/Resolving]
  - Thrombotic microangiopathy [Recovering/Resolving]
  - Brain abscess [Not Recovered/Not Resolved]
  - Off label use [Unknown]

NARRATIVE: CASE EVENT DATE: 20210516
